FAERS Safety Report 9614253 (Version 3)
Quarter: 2013Q4

REPORT INFORMATION
  Report Type: Spontaneous
  Country: IT (occurrence: IT)
  Receive Date: 20131011
  Receipt Date: 20131125
  Transmission Date: 20140711
  Serious: Yes (Hospitalization)
  Sender: FDA-Public Use
  Company Number: IT-BRISTOL-MYERS SQUIBB COMPANY-19479948

PATIENT
  Age: 80 Year
  Sex: Male

DRUGS (11)
  1. COUMADIN TABS 5 MG [Suspect]
     Indication: ATRIAL FIBRILLATION
     Route: 048
     Dates: start: 20100101, end: 20121113
  2. SPIDIDOL [Interacting]
     Indication: OSTEOARTHRITIS
     Dosage: PRODUCT STRENGTH:400 MG TABS
     Route: 048
     Dates: start: 20110501, end: 20121113
  3. GEMFIBROZIL [Concomitant]
  4. ALLOPURINOL [Concomitant]
  5. BISOPROLOL HEMIFUMARATE [Concomitant]
  6. CARVEDILOL [Concomitant]
  7. ENALAPRIL [Concomitant]
  8. TRINIPLAS [Concomitant]
  9. LASITONE [Concomitant]
     Dosage: 25+37 MG CAPS
  10. LASIX [Concomitant]
     Dosage: TABS
  11. EFFERALGAN [Concomitant]

REACTIONS (3)
  - Drug interaction [Unknown]
  - Epistaxis [Recovered/Resolved]
  - Hypocoagulable state [Unknown]
